FAERS Safety Report 7782988-4 (Version None)
Quarter: 2011Q3

REPORT INFORMATION
  Report Type: 
  Country: None (occurrence: None)
  Receive Date: 20110926
  Receipt Date: 20110916
  Transmission Date: 20111222
  Serious: Yes (Hospitalization)
  Sender: FDA-Public Use
  Company Number: JPI-P-017115

PATIENT
  Age: 83 Year
  Sex: Male
  Weight: 86.1834 kg

DRUGS (5)
  1. XYREM [Suspect]
     Dosage: 6 GM (3 GM, 2 IN 1 D), ORAL, 4.5 GM (2.25 GM, 2 IN 1 D), ORAL
     Route: 048
     Dates: start: 20110101
  2. XYREM [Suspect]
     Dosage: 6 GM (3 GM, 2 IN 1 D), ORAL, 4.5 GM (2.25 GM, 2 IN 1 D), ORAL
     Route: 048
     Dates: end: 20110101
  3. MULTIPLE UNSPECIFIED MEDICATIONS [Concomitant]
  4. DEXTROAMPHETAMINE [Concomitant]
  5. XYREM [Suspect]
     Indication: CATAPLEXY
     Dosage: 4.5 GM (2.25 GM, 2 IN 1 D), ORAL
     Route: 048
     Dates: start: 20090101

REACTIONS (2)
  - CATAPLEXY [None]
  - CONVULSION [None]
